FAERS Safety Report 9448186 (Version 1)
Quarter: 2013Q3

REPORT INFORMATION
  Report Type: Spontaneous
  Country: KR (occurrence: None)
  Receive Date: 20130806
  Receipt Date: 20130806
  Transmission Date: 20140515
  Serious: Yes (Hospitalization)
  Sender: FDA-Public Use
  Company Number: VAL_02676_2013

PATIENT
  Age: 32 Year
  Sex: Female

DRUGS (1)
  1. BROMOCRIPTINE [Suspect]
     Indication: LACTATION DISORDER
     Route: 048

REACTIONS (5)
  - Cerebral artery stenosis [None]
  - Transient ischaemic attack [None]
  - Headache [None]
  - Cerebral vasoconstriction [None]
  - Ischaemic stroke [None]
